FAERS Safety Report 24649911 (Version 1)
Quarter: 2024Q4

REPORT INFORMATION
  Report Type: Report from Study
  Country: US (occurrence: US)
  Receive Date: 20241122
  Receipt Date: 20241122
  Transmission Date: 20250114
  Serious: Yes (Other)
  Sender: ABBVIE
  Company Number: US-ABBVIE-5987038

PATIENT
  Age: 58 Year
  Sex: Male

DRUGS (1)
  1. CREON [Suspect]
     Active Substance: PANCRELIPASE AMYLASE\PANCRELIPASE LIPASE\PANCRELIPASE PROTEASE
     Indication: Diabetes mellitus
     Dosage: FORM STRENGTH: 36000 UNITS
     Route: 048
     Dates: start: 20230701

REACTIONS (1)
  - Pancreatectomy [Recovering/Resolving]

NARRATIVE: CASE EVENT DATE: 20240301
